FAERS Safety Report 22007447 (Version 6)
Quarter: 2023Q4

REPORT INFORMATION
  Report Type: Spontaneous
  Country: CA (occurrence: CA)
  Receive Date: 20230218
  Receipt Date: 20231218
  Transmission Date: 20240110
  Serious: Yes (Hospitalization, Other)
  Sender: FDA-Public Use
  Company Number: CA-CELLTRION INC.-2022CA011423

PATIENT

DRUGS (8)
  1. INFLECTRA [Suspect]
     Active Substance: INFLIXIMAB-DYYB
     Indication: Crohn^s disease
     Dosage: 500 MG
     Route: 042
  2. INFLECTRA [Suspect]
     Active Substance: INFLIXIMAB-DYYB
     Dosage: 500 MG EVERY 8 WEEKS
     Route: 042
     Dates: start: 20220710
  3. INFLECTRA [Suspect]
     Active Substance: INFLIXIMAB-DYYB
     Dosage: UNK
     Route: 042
     Dates: start: 20221030
  4. INFLECTRA [Suspect]
     Active Substance: INFLIXIMAB-DYYB
     Dosage: 500 MG EVERY 8 WEEKS
     Route: 042
     Dates: start: 20221218
  5. INFLECTRA [Suspect]
     Active Substance: INFLIXIMAB-DYYB
     Dosage: UNK
     Route: 042
     Dates: start: 20230423
  6. INFLECTRA [Suspect]
     Active Substance: INFLIXIMAB-DYYB
     Dosage: UNK
     Route: 042
     Dates: start: 20230618
  7. INFLECTRA [Suspect]
     Active Substance: INFLIXIMAB-DYYB
     Dosage: 500 MG, EVERY 8 WEEKS
     Route: 042
  8. INFLECTRA [Suspect]
     Active Substance: INFLIXIMAB-DYYB
     Dosage: 500 MG, EVERY 8 WEEKS
     Route: 042
     Dates: start: 20231209

REACTIONS (16)
  - Gastroenteritis [Recovered/Resolved]
  - Condition aggravated [Not Recovered/Not Resolved]
  - Wisdom teeth removal [Unknown]
  - Burns second degree [Recovered/Resolved]
  - Infusion site paraesthesia [Recovered/Resolved]
  - Infusion site erythema [Recovered/Resolved]
  - Genital infection bacterial [Recovered/Resolved]
  - Eczema [Recovering/Resolving]
  - Mouth ulceration [Recovered/Resolved]
  - Swollen tongue [Recovering/Resolving]
  - Oral pain [Recovered/Resolved]
  - Plicated tongue [Not Recovered/Not Resolved]
  - Tongue dry [Not Recovered/Not Resolved]
  - Off label use [Unknown]
  - Off label use [Unknown]
  - Intentional product use issue [Unknown]

NARRATIVE: CASE EVENT DATE: 20220710
